FAERS Safety Report 7460129-0 (Version None)
Quarter: 2011Q2

REPORT INFORMATION
  Report Type: 
  Country: None (occurrence: None)
  Receive Date: 20110505
  Receipt Date: 20110502
  Transmission Date: 20111010
  Serious: Yes (Hospitalization, Other)
  Sender: FDA-Public Use
  Company Number: US-ELI_LILLY_AND_COMPANY-US201004000726

PATIENT
  Sex: Female
  Weight: 77.098 kg

DRUGS (8)
  1. LIPITOR [Concomitant]
     Indication: BLOOD CHOLESTEROL
     Dosage: 80 MG, EACH EVENING
     Route: 048
     Dates: start: 20030101, end: 20080401
  2. NIASPAN [Concomitant]
     Indication: BLOOD CHOLESTEROL
     Dates: start: 20080301, end: 20080401
  3. LANTUS [Concomitant]
     Indication: DIABETES MELLITUS
     Dosage: 12 U, EACH EVENING
  4. BYETTA [Suspect]
     Dosage: UNK, UNKNOWN
     Route: 065
     Dates: start: 20080417, end: 20080424
  5. GLUCOVANCE [Concomitant]
     Indication: DIABETES MELLITUS
     Dosage: UNK, UNK
     Dates: start: 20040101, end: 20080401
  6. LOVAZA [Concomitant]
     Indication: BLOOD CHOLESTEROL
     Dosage: UNK, UNK
     Dates: start: 20080301, end: 20080401
  7. METFORMIN [Concomitant]
     Indication: DIABETES MELLITUS
     Dosage: UNK, UNK
     Dates: start: 20040101, end: 20080401
  8. PIOGLITAZONE [Concomitant]

REACTIONS (5)
  - RENAL TUBULAR NECROSIS [None]
  - RENAL FAILURE CHRONIC [None]
  - PANCREATITIS ACUTE [None]
  - RENAL FAILURE ACUTE [None]
  - OFF LABEL USE [None]
